FAERS Safety Report 7899890-X (Version None)
Quarter: 2011Q4

REPORT INFORMATION
  Report Type: 
  Country: None (occurrence: None)
  Receive Date: 20111107
  Receipt Date: 20111004
  Transmission Date: 20120403
  Serious: Yes (Other)
  Sender: FDA-Public Use
  Company Number: US-AMGEN-USASP2011044980

PATIENT
  Age: 57 Year
  Sex: Female

DRUGS (5)
  1. CYMBALTA [Concomitant]
     Dosage: UNK
  2. ENBREL [Suspect]
     Indication: PSORIASIS
     Dosage: UNK
     Dates: start: 20090101, end: 20110801
  3. COZAAR [Concomitant]
     Dosage: 1 MG, QD
  4. M.V.I. [Concomitant]
     Dosage: UNK
  5. CALCIUM [Concomitant]
     Dosage: UNK

REACTIONS (1)
  - MYCOBACTERIUM TUBERCULOSIS COMPLEX TEST POSITIVE [None]
